FAERS Safety Report 10066992 (Version 1)
Quarter: 2014Q2

REPORT INFORMATION
  Report Type: Spontaneous
  Country: CN (occurrence: CN)
  Receive Date: 20140409
  Receipt Date: 20140409
  Transmission Date: 20141212
  Serious: Yes (Death, Hospitalization)
  Sender: FDA-Public Use
  Company Number: CN-ORION CORPORATION ORION PHARMA-ENT 2014-0052

PATIENT
  Age: 68 Year
  Sex: Female

DRUGS (5)
  1. ENTACAPONE [Suspect]
     Route: 065
  2. LEVODOPA [Suspect]
     Route: 065
  3. LEVODOPA [Suspect]
     Route: 065
  4. LEVODOPA [Suspect]
     Route: 065
  5. AMANTADINE [Suspect]
     Route: 065

REACTIONS (7)
  - Neuroleptic malignant syndrome [Unknown]
  - Acute respiratory failure [Unknown]
  - Lung infection [Fatal]
  - Cardiac failure [Fatal]
  - Sinus tachycardia [Unknown]
  - Blood pressure fluctuation [Unknown]
  - Aphasia [Unknown]
